FAERS Safety Report 16069424 (Version 1)
Quarter: 2019Q1

REPORT INFORMATION
  Report Type: Spontaneous
  Country: US (occurrence: US)
  Receive Date: 20190313
  Receipt Date: 20190313
  Transmission Date: 20190418
  Serious: Yes (Other)
  Sender: FDA-Public Use
  Company Number: US-SA-2019SA068492

PATIENT

DRUGS (2)
  1. METHOTREXATE. [Suspect]
     Active Substance: METHOTREXATE
     Dosage: 17.5 MG, QW (INJECT 1ML/25 MG ON FRIDAYS)
  2. KEVZARA [Suspect]
     Active Substance: SARILUMAB

REACTIONS (3)
  - Abscess [Unknown]
  - Cellulitis [Unknown]
  - Dyspepsia [Unknown]
